FAERS Safety Report 21532037 (Version 2)
Quarter: 2023Q4

REPORT INFORMATION
  Report Type: Report from Study
  Country: US (occurrence: US)
  Receive Date: 20221101
  Receipt Date: 20231113
  Transmission Date: 20240110
  Serious: Yes (Other)
  Sender: FDA-Public Use
  Company Number: US-ABBVIE-4181680

PATIENT
  Sex: Male

DRUGS (2)
  1. IMBRUVICA [Suspect]
     Active Substance: IBRUTINIB
     Indication: Chronic lymphocytic leukaemia
     Route: 048
     Dates: start: 2013
  2. IMBRUVICA [Suspect]
     Active Substance: IBRUTINIB
     Indication: Chronic lymphocytic leukaemia
     Route: 048
     Dates: start: 20221028

REACTIONS (9)
  - Hip arthroplasty [Unknown]
  - Ankle arthroplasty [Unknown]
  - Fatigue [Unknown]
  - Pain in extremity [Unknown]
  - Hypertension [Unknown]
  - Osteophyte fracture [Unknown]
  - Cartilage atrophy [Unknown]
  - Procedural pain [Unknown]
  - Back pain [Unknown]

NARRATIVE: CASE EVENT DATE: 20150101
